FAERS Safety Report 19220260 (Version 3)
Quarter: 2022Q1

REPORT INFORMATION
  Report Type: Report from Study
  Country: US (occurrence: US)
  Receive Date: 20210505
  Receipt Date: 20220217
  Transmission Date: 20220423
  Serious: Yes (Other)
  Sender: FDA-Public Use
  Company Number: US-SHIRE-US202030071

PATIENT
  Age: 74 Year
  Sex: Female

DRUGS (1)
  1. HUMAN IMMUNOGLOBULIN G [Suspect]
     Active Substance: HUMAN IMMUNOGLOBULIN G
     Indication: Immunodeficiency common variable
     Dosage: 15 GRAM, 1X/WEEK
     Route: 065

REACTIONS (10)
  - Pneumonia staphylococcal [Recovering/Resolving]
  - Sjogren^s syndrome [Unknown]
  - Rheumatoid arthritis [Unknown]
  - Candida infection [Unknown]
  - Chronic obstructive pulmonary disease [Unknown]
  - Seasonal allergy [Unknown]
  - Upper respiratory tract infection [Recovered/Resolved]
  - Asthenia [Unknown]
  - Insomnia [Unknown]
  - Osteoarthritis [Unknown]

NARRATIVE: CASE EVENT DATE: 20210201
